FAERS Safety Report 5841878-4 (Version None)
Quarter: 2008Q3

REPORT INFORMATION
  Report Type: 
  Country: None (occurrence: None)
  Receive Date: 20080811
  Receipt Date: 20080811
  Transmission Date: 20090109
  Serious: No
  Sender: FDA-Public Use
  Company Number: None

PATIENT
  Age: 37 Year
  Sex: Female
  Weight: 89.8122 kg

DRUGS (1)
  1. LYRICA [Suspect]
     Indication: FIBROMYALGIA
     Dosage: 75MG 2 TIMES A DAY OTHER
     Route: 050
     Dates: start: 20080804, end: 20080809

REACTIONS (9)
  - ALOPECIA [None]
  - BRADYPHRENIA [None]
  - CHEST PAIN [None]
  - DISTURBANCE IN ATTENTION [None]
  - EXTRASYSTOLES [None]
  - FEELING DRUNK [None]
  - OEDEMA PERIPHERAL [None]
  - RASH [None]
  - SWELLING FACE [None]
